FAERS Safety Report 9353183 (Version 1)
Quarter: 2013Q2

REPORT INFORMATION
  Report Type: Spontaneous
  Country: US (occurrence: None)
  Receive Date: 20130617
  Receipt Date: 20130617
  Transmission Date: 20140414
  Serious: No
  Sender: FDA-Public Use
  Company Number: None

PATIENT
  Age: 76 Year
  Sex: Female
  Weight: 68.04 kg

DRUGS (1)
  1. SERTRALINE HCL [Suspect]
     Dosage: ON + OFF FOR 6 MO; 1/DAY

REACTIONS (5)
  - Urinary retention [None]
  - Pollakiuria [None]
  - Back pain [None]
  - Flank pain [None]
  - Vertigo [None]
